FAERS Safety Report 11044907 (Version 2)
Quarter: 2015Q2

REPORT INFORMATION
  Report Type: Spontaneous
  Country: RU (occurrence: RU)
  Receive Date: 20150417
  Receipt Date: 20150504
  Transmission Date: 20150821
  Serious: Yes (Hospitalization)
  Sender: FDA-Public Use
  Company Number: RU-GLAXOSMITHKLINE-RU2015GSK048389

PATIENT
  Age: 2 Year
  Sex: Male

DRUGS (2)
  1. ZINNAT [Suspect]
     Active Substance: CEFUROXIME AXETIL
     Indication: RESPIRATORY TRACT INFECTION VIRAL
  2. ZINNAT [Suspect]
     Active Substance: CEFUROXIME AXETIL
     Indication: TRACHEOBRONCHITIS
     Dosage: 125 MG, UNK
     Dates: start: 20150323, end: 20150325

REACTIONS (2)
  - Acute tonsillitis [Recovering/Resolving]
  - Pyrexia [Recovering/Resolving]

NARRATIVE: CASE EVENT DATE: 20150325
